FAERS Safety Report 4588822-8 (Version None)
Quarter: 2005Q1

REPORT INFORMATION
  Report Type: 
  Country: None (occurrence: None)
  Receive Date: 20050216
  Receipt Date: 20050202
  Transmission Date: 20050727
  Serious: Yes (Hospitalization)
  Sender: FDA-Public Use
  Company Number: 2005BI002518

PATIENT
  Sex: Female

DRUGS (2)
  1. AVONEX [Suspect]
     Indication: MULTIPLE SCLEROSIS
     Dosage: 30 UG; QW; IM
     Route: 030
  2. MEDICATION (NOS) [Concomitant]

REACTIONS (4)
  - ASTHENIA [None]
  - FALL [None]
  - INTERVERTEBRAL DISC PROTRUSION [None]
  - PARALYSIS [None]
